FAERS Safety Report 4905152-2 (Version None)
Quarter: 2006Q1

REPORT INFORMATION
  Report Type: 
  Country: None (occurrence: None)
  Receive Date: 20060208
  Receipt Date: 20051119
  Transmission Date: 20060701
  Serious: Yes (Other)
  Sender: FDA-Public Use
  Company Number: US-GLAXOSMITHKLINE-A0583073A

PATIENT
  Age: 48 Year
  Sex: Female

DRUGS (2)
  1. PAXIL [Suspect]
     Indication: DRUG USE FOR UNKNOWN INDICATION
     Dosage: 20MG UNKNOWN
     Route: 048
  2. SYNTHROID [Concomitant]
     Dosage: 125MCG PER DAY
     Route: 065

REACTIONS (1)
  - HEPATIC ENZYME INCREASED [None]
